FAERS Safety Report 24915589 (Version 2)
Quarter: 2025Q1

REPORT INFORMATION
  Report Type: Report from Study
  Country: US (occurrence: US)
  Receive Date: 20250203
  Receipt Date: 20250217
  Transmission Date: 20250409
  Serious: Yes (Hospitalization, Other)
  Sender: AUROBINDO
  Company Number: US-AUROBINDO-AUR-APL-2025-004974

PATIENT
  Age: 75 Year
  Sex: Female
  Weight: 70.5 kg

DRUGS (2)
  1. BELINOSTAT [Suspect]
     Active Substance: BELINOSTAT
     Indication: Metastatic ocular melanoma
     Route: 042
     Dates: start: 20230130, end: 20230515
  2. BINIMETINIB [Suspect]
     Active Substance: BINIMETINIB
     Indication: Metastatic ocular melanoma
     Dosage: 45 MILLIGRAM, TWO TIMES A DAY
     Route: 048
     Dates: start: 20230130, end: 20230531

REACTIONS (1)
  - Pneumonitis [Recovered/Resolved]

NARRATIVE: CASE EVENT DATE: 20230531
